FAERS Safety Report 14871080 (Version 1)
Quarter: 2018Q2

REPORT INFORMATION
  Report Type: Spontaneous
  Country: US (occurrence: US)
  Receive Date: 20180509
  Receipt Date: 20180509
  Transmission Date: 20180711
  Serious: Yes (Other)
  Sender: FDA-Public Use
  Company Number: US-GLAXOSMITHKLINE-US2018075782

PATIENT
  Age: 69 Year
  Sex: Male

DRUGS (10)
  1. ADVAIR DISKUS [Suspect]
     Active Substance: FLUTICASONE PROPIONATE\SALMETEROL XINAFOATE
     Indication: BRONCHITIS
     Dosage: 1 PUFF(S), BID
     Route: 055
     Dates: start: 20180427
  2. HYDROXYZINE [Concomitant]
     Active Substance: HYDROXYZINE HYDROCHLORIDE
  3. ZITHROMAX [Suspect]
     Active Substance: AZITHROMYCIN DIHYDRATE
     Indication: PRODUCT USED FOR UNKNOWN INDICATION
  4. LABETALOL [Concomitant]
     Active Substance: LABETALOL\LABETALOL HYDROCHLORIDE
  5. GABAPENTIN. [Concomitant]
     Active Substance: GABAPENTIN
  6. VALSARTAN. [Concomitant]
     Active Substance: VALSARTAN
  7. CLONIDINE. [Concomitant]
     Active Substance: CLONIDINE
  8. CETIRIZINE [Concomitant]
     Active Substance: CETIRIZINE HYDROCHLORIDE
  9. ANTIHISTAMINE [Concomitant]
     Active Substance: ANTIHISTAMINES NOS
  10. TRAZODONE [Concomitant]
     Active Substance: TRAZODONE HYDROCHLORIDE

REACTIONS (8)
  - Hypertensive crisis [Unknown]
  - Insomnia [Unknown]
  - Tachycardia [Recovered/Resolved]
  - Parosmia [Recovered/Resolved]
  - Nervousness [Unknown]
  - Restlessness [Unknown]
  - Blood pressure increased [Recovered/Resolved]
  - Anosmia [Unknown]

NARRATIVE: CASE EVENT DATE: 20180427
